FAERS Safety Report 14166863 (Version 1)
Quarter: 2017Q4

REPORT INFORMATION
  Report Type: Spontaneous
  Country: US (occurrence: None)
  Receive Date: 20171106
  Receipt Date: 20171106
  Transmission Date: 20180321
  Serious: Yes (Other)
  Sender: FDA-Public Use
  Company Number: None

PATIENT
  Age: 59 Year
  Sex: Female

DRUGS (1)
  1. CAPECITABINE. [Suspect]
     Active Substance: CAPECITABINE
     Indication: PANCREATIC CARCINOMA
     Dosage: 1500MG BID FOR 2 WEEKS ON AND ONE WEEK OFF PO
     Route: 048
     Dates: start: 20171013

REACTIONS (2)
  - Abdominal discomfort [None]
  - Therapy change [None]

NARRATIVE: CASE EVENT DATE: 20171020
